FAERS Safety Report 7251360-8 (Version None)
Quarter: 2011Q1

REPORT INFORMATION
  Report Type: 
  Country: None (occurrence: None)
  Receive Date: 20110119
  Receipt Date: 20110107
  Transmission Date: 20110831
  Serious: Yes (Hospitalization)
  Sender: FDA-Public Use
  Company Number: UTC-004155

PATIENT
  Age: 61 Year
  Sex: Female
  Weight: 104.1 kg

DRUGS (4)
  1. DIURETICS (DIURETICS) [Concomitant]
  2. COUMADIN [Concomitant]
  3. TRACLEER [Concomitant]
  4. REMODULIN [Suspect]
     Indication: PULMONARY ARTERIAL HYPERTENSION
     Dosage: 126.72 UG/KG (0.088 UG/KG,1 IN 1 MIN,INTRAVENOUS
     Route: 042
     Dates: start: 20090916

REACTIONS (4)
  - BLINDNESS [None]
  - DIARRHOEA [None]
  - FLUSHING [None]
  - PNEUMONIA [None]
